FAERS Safety Report 6339324-X (Version None)
Quarter: 2009Q3

REPORT INFORMATION
  Report Type: 
  Country: None (occurrence: None)
  Receive Date: 20090903
  Receipt Date: 20090827
  Transmission Date: 20100115
  Serious: Yes (Other)
  Sender: FDA-Public Use
  Company Number: B0578183A

PATIENT
  Sex: Male

DRUGS (5)
  1. VALTREX [Suspect]
     Indication: ORAL HERPES
     Dosage: 500MG PER DAY
     Route: 048
     Dates: start: 20090605, end: 20090607
  2. TANKARU [Concomitant]
     Dosage: 1500MG PER DAY
     Route: 048
  3. CHINESE MEDICINE [Concomitant]
     Dosage: 9G PER DAY
     Route: 048
  4. CLARUTE [Concomitant]
     Dosage: 100MG PER DAY
     Route: 048
  5. MICARDIS [Concomitant]
     Dosage: 20MG PER DAY
     Route: 048

REACTIONS (4)
  - DIZZINESS [None]
  - DYSARTHRIA [None]
  - DYSSTASIA [None]
  - ENCEPHALOPATHY [None]
